FAERS Safety Report 8454863 (Version 4)
Quarter: 2012Q4

REPORT INFORMATION
  Report Type: 
  Country: US (occurrence: US)
  Receive Date: 20120312
  Receipt Date: 20120905
  Transmission Date: 20130627
  Serious: Yes (Other)
  Sender: FDA-Public Use
  Company Number: US-ROCHE-1039943

PATIENT
  Sex: Female

DRUGS (3)
  1. AVASTIN [Suspect]
     Indication: AGE-RELATED MACULAR DEGENERATION
     Route: 042
  2. TYLENOL [Concomitant]
     Indication: BACK PAIN
     Route: 048
  3. NORVASC [Concomitant]
     Indication: HYPERTENSION

REACTIONS (10)
  - Aortic aneurysm [Not Recovered/Not Resolved]
  - Ocular hyperaemia [Unknown]
  - Back pain [Not Recovered/Not Resolved]
  - Blood pressure increased [Recovering/Resolving]
  - Oedema peripheral [Recovered/Resolved]
  - Mental impairment [Not Recovered/Not Resolved]
  - Lung infection [Not Recovered/Not Resolved]
  - Vitreous floaters [Unknown]
  - Product quality issue [Unknown]
  - Product counterfeit [Unknown]
